FAERS Safety Report 4829423-3 (Version None)
Quarter: 2005Q4

REPORT INFORMATION
  Report Type: 
  Country: None (occurrence: None)
  Receive Date: 20051028
  Receipt Date: 20050405
  Transmission Date: 20060501
  Serious: Yes (Hospitalization)
  Sender: FDA-Public Use
  Company Number: US015049

PATIENT
  Age: 14 Year
  Sex: Female

DRUGS (4)
  1. PROVIGIL [Suspect]
     Indication: DEPRESSION
     Dosage: 1000 MG ONCE ORAL
     Route: 048
     Dates: start: 20050315, end: 20050315
  2. AMBIEN [Suspect]
     Dosage: 60 MG ONCE ORAL
     Route: 048
     Dates: start: 20050315, end: 20050315
  3. WELLBUTRIN [Suspect]
     Dates: start: 20050315, end: 20050315
  4. CYMBALTA [Concomitant]

REACTIONS (4)
  - MULTIPLE DRUG OVERDOSE [None]
  - SUICIDE ATTEMPT [None]
  - TACHYCARDIA [None]
  - VOMITING [None]
